FAERS Safety Report 21029143 (Version 2)
Quarter: 2022Q3

REPORT INFORMATION
  Report Type: Spontaneous
  Country: US (occurrence: US)
  Receive Date: 20220630
  Receipt Date: 20220715
  Transmission Date: 20221027
  Serious: Yes (Life-Threatening, Hospitalization, Other)
  Sender: FDA-Public Use
  Company Number: US-TEVA-2022-US-2049840

PATIENT
  Age: 3 Decade
  Sex: Male

DRUGS (4)
  1. PREDNISONE [Suspect]
     Active Substance: PREDNISONE
     Indication: Colitis ulcerative
     Dosage: 30 MILLIGRAM DAILY;
     Route: 065
  2. INFLIXIMAB [Suspect]
     Active Substance: INFLIXIMAB
     Indication: Colitis ulcerative
     Route: 065
  3. CERTOLIZUMAB [Suspect]
     Active Substance: CERTOLIZUMAB
     Indication: Colitis ulcerative
     Route: 065
  4. ENTYVIO [Concomitant]
     Active Substance: VEDOLIZUMAB
     Indication: Colitis ulcerative
     Route: 065

REACTIONS (9)
  - Pulmonary embolism [Recovered/Resolved]
  - Pulmonary infarction [Recovered/Resolved]
  - Electrocardiogram ST-T segment abnormal [Recovered/Resolved]
  - Cardiac output decreased [Recovered/Resolved]
  - Hypotension [Recovered/Resolved]
  - Syncope [Recovered/Resolved]
  - Left ventricular end-diastolic pressure increased [Recovered/Resolved]
  - Pulmonary hypertension [Recovered/Resolved]
  - Drug ineffective [Unknown]
